FAERS Safety Report 8358349-6 (Version None)
Quarter: 2012Q2

REPORT INFORMATION
  Report Type: 
  Country: None (occurrence: None)
  Receive Date: 20120514
  Receipt Date: 20110427
  Transmission Date: 20120825
  Serious: No
  Sender: FDA-Public Use
  Company Number: US-ALEXION-A201100589

PATIENT
  Sex: Male

DRUGS (5)
  1. SOLIRIS [Suspect]
     Indication: PAROXYSMAL NOCTURNAL HAEMOGLOBINURIA
     Dosage: 600 MG UNK
     Route: 042
     Dates: start: 20090101
  2. CYCLOSPORINE [Concomitant]
     Dosage: UNK
  3. SOLIRIS [Suspect]
     Dosage: 900 MG Q2W
  4. TOPROL-XL [Concomitant]
     Indication: HYPERTENSION
     Dosage: UNK
  5. FERROUS SULFATE TAB [Concomitant]
     Dosage: UNK

REACTIONS (6)
  - WEIGHT DECREASED [None]
  - POOR QUALITY SLEEP [None]
  - DEPRESSION [None]
  - CHROMATURIA [None]
  - DECREASED APPETITE [None]
  - BLOOD URINE PRESENT [None]
